FAERS Safety Report 4563751-4 (Version None)
Quarter: 2005Q1

REPORT INFORMATION
  Report Type: 
  Country: None (occurrence: None)
  Receive Date: 20050128
  Receipt Date: 20041208
  Transmission Date: 20050727
  Serious: Yes (Hospitalization)
  Sender: FDA-Public Use
  Company Number: 200413616EU

PATIENT
  Age: 4 Year
  Sex: Female

DRUGS (12)
  1. METRONIDAZOLE HCL [Suspect]
     Indication: BRAIN ABSCESS
     Route: 042
     Dates: start: 20040410, end: 20040503
  2. ROCEPHALIN [Concomitant]
     Dates: start: 20040406, end: 20040423
  3. PENICILLIN [Concomitant]
     Route: 042
     Dates: start: 20040412, end: 20040519
  4. ACETAMINOPHEN [Concomitant]
     Dosage: DOSE UNIT: MILLIGRAM PER MILLILITRE
     Route: 048
  5. ACETYLSALICYLIC ACID SRT [Concomitant]
  6. ZOFRAN [Concomitant]
  7. MORFIN [Concomitant]
  8. METADON [Concomitant]
  9. NOZINAN [Concomitant]
  10. STESOLID [Concomitant]
  11. LAKTULOSE [Concomitant]
  12. LAXOBERAL [Concomitant]

REACTIONS (6)
  - HEADACHE [None]
  - ILEUS PARALYTIC [None]
  - MUSCLE SPASMS [None]
  - NEUTROPENIA [None]
  - RASH [None]
  - VOMITING [None]
